FAERS Safety Report 15895255 (Version 3)
Quarter: 2019Q3

REPORT INFORMATION
  Report Type: Spontaneous
  Country: IT (occurrence: IT)
  Receive Date: 20190131
  Receipt Date: 20190705
  Transmission Date: 20191004
  Serious: Yes (Hospitalization, Other)
  Sender: FDA-Public Use
  Company Number: IT-DRREDDYS-USA/ITL/19/0107451

PATIENT
  Age: 70 Year
  Sex: Female

DRUGS (5)
  1. DOXORUBICIN [Suspect]
     Active Substance: DOXORUBICIN
     Indication: NON-HODGKIN^S LYMPHOMA
  2. CYCLOPHOSPHAMIDE. [Suspect]
     Active Substance: CYCLOPHOSPHAMIDE
     Indication: NON-HODGKIN^S LYMPHOMA
  3. PREDNISONE. [Suspect]
     Active Substance: PREDNISONE
     Indication: NON-HODGKIN^S LYMPHOMA
     Route: 048
  4. VINCRISTINE [Suspect]
     Active Substance: VINCRISTINE
     Indication: NON-HODGKIN^S LYMPHOMA
  5. IMATINIB MESYLATE TABLETS [Suspect]
     Active Substance: IMATINIB MESYLATE
     Indication: CHRONIC MYELOID LEUKAEMIA
     Route: 048

REACTIONS (11)
  - Left ventricular dysfunction [Recovered/Resolved]
  - Cardiotoxicity [Recovered/Resolved]
  - Bundle branch block left [Recovering/Resolving]
  - Mitral valve incompetence [Recovered/Resolved]
  - Aortic stenosis [Recovered/Resolved]
  - Pulmonary arterial pressure increased [Recovered/Resolved]
  - Cardiomyopathy [Recovering/Resolving]
  - Cardiac failure congestive [Recovered/Resolved]
  - Systolic dysfunction [Recovering/Resolving]
  - Acute pulmonary oedema [Unknown]
  - Dyspnoea [Recovered/Resolved]
